FAERS Safety Report 24679366 (Version 1)
Quarter: 2024Q4

REPORT INFORMATION
  Report Type: Spontaneous
  Country: CN (occurrence: CN)
  Receive Date: 20241129
  Receipt Date: 20241129
  Transmission Date: 20250115
  Serious: Yes (Other)
  Sender: ACCORD
  Company Number: None

PATIENT
  Age: 47 Year
  Sex: Female
  Weight: 60 kg

DRUGS (1)
  1. TRASTUZUMAB [Suspect]
     Active Substance: TRASTUZUMAB
     Indication: Breast cancer
     Dosage: STRENGTH: 150 MILLIGRAM, QD, IV DRIP
     Route: 042
     Dates: start: 20240823, end: 20240823

REACTIONS (1)
  - Cardiotoxicity [Recovering/Resolving]

NARRATIVE: CASE EVENT DATE: 20240823
